FAERS Safety Report 5387413-9 (Version None)
Quarter: 2007Q3

REPORT INFORMATION
  Report Type: 
  Country: None (occurrence: None)
  Receive Date: 20070711
  Receipt Date: 20070711
  Transmission Date: 20080115
  Serious: Yes (Hospitalization)
  Sender: FDA-Public Use
  Company Number: None

PATIENT
  Age: 40 Year
  Sex: Male
  Weight: 115.6672 kg

DRUGS (15)
  1. IL-2 600,000 IU/KG -ABW DOSING FOR THIS PT [Suspect]
     Indication: METASTATIC RENAL CELL CARCINOMA
     Dosage: 54.96 44 IV Q8HRS/53.2 44 IV Q8HR
     Route: 042
     Dates: start: 20070607, end: 20070612
  2. IL-2 600,000 IU/KG -ABW DOSING FOR THIS PT [Suspect]
     Indication: METASTATIC RENAL CELL CARCINOMA
     Dosage: 54.96 44 IV Q8HRS/53.2 44 IV Q8HR
     Route: 042
     Dates: start: 20070621, end: 20070626
  3. AVASTIN [Suspect]
     Indication: METASTATIC RENAL CELL CARCINOMA
     Dosage: 1220 MG IV Q2 WEEKS
     Route: 042
     Dates: start: 20070524
  4. AVASTIN [Suspect]
     Indication: METASTATIC RENAL CELL CARCINOMA
     Dosage: 1220 MG IV Q2 WEEKS
     Route: 042
     Dates: start: 20070607
  5. AVASTIN [Suspect]
     Indication: METASTATIC RENAL CELL CARCINOMA
     Dosage: 1220 MG IV Q2 WEEKS
     Route: 042
     Dates: start: 20070621
  6. LISINOPRIL [Concomitant]
  7. PRILOSEC [Concomitant]
  8. NEPHROCAP [Concomitant]
  9. ATIVAN [Concomitant]
  10. XALATAN [Concomitant]
  11. CLARITIN [Concomitant]
  12. FAMOTIDINE [Concomitant]
  13. COMPAZINE [Concomitant]
  14. IMODIUM [Concomitant]
  15. BENEDRYL [Concomitant]

REACTIONS (11)
  - ANAEMIA [None]
  - ANOREXIA [None]
  - BLOOD PRESSURE INCREASED [None]
  - CHILLS [None]
  - DIARRHOEA [None]
  - FATIGUE [None]
  - HEART RATE INCREASED [None]
  - HYPERKALAEMIA [None]
  - NAUSEA [None]
  - RENAL FAILURE ACUTE [None]
  - VOMITING [None]
